FAERS Safety Report 9383952 (Version 1)
Quarter: 2013Q3

REPORT INFORMATION
  Report Type: Spontaneous
  Country: US (occurrence: US)
  Receive Date: 20130705
  Receipt Date: 20130705
  Transmission Date: 20140515
  Serious: Yes (Hospitalization)
  Sender: FDA-Public Use
  Company Number: US-ASTRAZENECA-2013SE49258

PATIENT
  Age: 65 Year
  Sex: Male
  Weight: 104.3 kg

DRUGS (1)
  1. SYMBICORT [Suspect]
     Indication: PULMONARY CONGESTION
     Dosage: 80-4.5, TWO INHALATIONS TWICE DAILY
     Route: 055
     Dates: start: 201301

REACTIONS (2)
  - Pneumonia [Recovered/Resolved]
  - Off label use [Unknown]
